FAERS Safety Report 6208708-2 (Version None)
Quarter: 2009Q2

REPORT INFORMATION
  Report Type: 
  Country: None (occurrence: None)
  Receive Date: 20090522
  Receipt Date: 20090203
  Transmission Date: 20091009
  Serious: No
  Sender: FDA-Public Use
  Company Number: 8042307

PATIENT
  Age: 37 Year
  Sex: Female
  Weight: 66.8 kg

DRUGS (5)
  1. CIMZIA [Suspect]
     Indication: CROHN'S DISEASE
     Dosage: 400 MG /M SC
     Route: 058
     Dates: start: 20080701
  2. ZYRTEC [Concomitant]
  3. SINGULAIR [Concomitant]
  4. PENTASA [Concomitant]
  5. ADVAIR HFA [Concomitant]

REACTIONS (3)
  - COUGH [None]
  - OROPHARYNGEAL PAIN [None]
  - RHINORRHOEA [None]
